FAERS Safety Report 10783884 (Version 2)
Quarter: 2015Q1

REPORT INFORMATION
  Report Type: Spontaneous
  Country: US (occurrence: SA)
  Receive Date: 20150210
  Receipt Date: 20150225
  Transmission Date: 20150721
  Serious: Yes (Other)
  Sender: FDA-Public Use
  Company Number: SA-FRI-1000074315

PATIENT
  Age: 65 Year
  Sex: Male

DRUGS (1)
  1. ROFLUMILAST [Suspect]
     Active Substance: ROFLUMILAST
     Indication: CHRONIC OBSTRUCTIVE PULMONARY DISEASE
     Route: 048

REACTIONS (2)
  - Tachycardia [Recovered/Resolved]
  - Tremor [Recovered/Resolved]
